FAERS Safety Report 6518738-9 (Version None)
Quarter: 2009Q4

REPORT INFORMATION
  Report Type: 
  Country: None (occurrence: None)
  Receive Date: 20091228
  Receipt Date: 20091216
  Transmission Date: 20100525
  Serious: Yes (Other)
  Sender: FDA-Public Use
  Company Number: US-JNJFOC-20091204321

PATIENT
  Age: 71 Year
  Sex: Male

DRUGS (2)
  1. REMICADE [Suspect]
     Dosage: .5MG/0.05ML
     Route: 050
  2. REMICADE [Suspect]
     Indication: CHOROIDAL NEOVASCULARISATION
     Dosage: .5MG/0.05ML
     Route: 050

REACTIONS (6)
  - INTRAOCULAR PRESSURE INCREASED [None]
  - MACULAR OEDEMA [None]
  - OPTIC NERVE DISORDER [None]
  - PAPILLOEDEMA [None]
  - UVEITIS [None]
  - VISUAL IMPAIRMENT [None]
